FAERS Safety Report 11603074 (Version 1)
Quarter: 2015Q4

REPORT INFORMATION
  Report Type: Spontaneous
  Country: US (occurrence: None)
  Receive Date: 20151005
  Receipt Date: 20151005
  Transmission Date: 20160304
  Serious: Yes (Hospitalization)
  Sender: FDA-Public Use
  Company Number: None

PATIENT
  Age: 54 Year
  Sex: Female
  Weight: 79.5 kg

DRUGS (8)
  1. RIBAVIRIN 1000MG [Suspect]
     Active Substance: RIBAVIRIN
     Indication: HEPATITIS C
     Route: 048
     Dates: start: 20150407, end: 20150605
  2. GABAPENTIN. [Concomitant]
     Active Substance: GABAPENTIN
  3. CELLCEPT [Concomitant]
     Active Substance: MYCOPHENOLATE MOFETIL\MYCOPHENOLATE MOFETIL HYDROCHLORIDE
  4. NEORAL [Concomitant]
     Active Substance: CYCLOSPORINE
  5. LOVAZA [Concomitant]
     Active Substance: OMEGA-3-ACID ETHYL ESTERS
  6. ZOLOFT [Concomitant]
     Active Substance: SERTRALINE HYDROCHLORIDE
  7. HARVONI [Suspect]
     Active Substance: LEDIPASVIR\SOFOSBUVIR
     Indication: HEPATITIS C
     Dosage: 400/90MG QD PO
     Route: 048
     Dates: start: 20150407, end: 20150630
  8. LANTUS [Concomitant]
     Active Substance: INSULIN GLARGINE

REACTIONS (6)
  - Fatigue [None]
  - Pyrexia [None]
  - Dyspnoea exertional [None]
  - Haemolytic anaemia [None]
  - Asthenia [None]
  - Poor venous access [None]

NARRATIVE: CASE EVENT DATE: 20150605
